FAERS Safety Report 9494658 (Version 2)
Quarter: 2013Q3

REPORT INFORMATION
  Report Type: Spontaneous
  Country: JP (occurrence: JP)
  Receive Date: 20130903
  Receipt Date: 20130910
  Transmission Date: 20140515
  Serious: Yes (Hospitalization, Other)
  Sender: FDA-Public Use
  Company Number: JP-PFIZER INC-2013251316

PATIENT
  Age: 30 Year
  Sex: Female

DRUGS (12)
  1. JZOLOFT [Suspect]
     Dosage: 100 MG, 1X/DAY
     Route: 048
  2. ANAFRANIL [Concomitant]
     Dosage: 100 MG, 1X/DAY
     Route: 048
  3. TASMOLIN [Concomitant]
     Dosage: 1 MG, 3X/DAY
     Route: 048
  4. ABILIFY [Concomitant]
     Dosage: 12 MG, 1X/DAY
     Route: 048
  5. LEXOTAN [Concomitant]
     Dosage: 10 MG, 3X/DAY
     Route: 048
  6. HIRNAMIN [Concomitant]
     Dosage: 20 MG, 1X/DAY
     Route: 048
  7. MIGSIS [Concomitant]
     Dosage: UNK
  8. EPEL [Concomitant]
     Dosage: UNK
  9. RISPERIDONE [Concomitant]
     Dosage: UNK
  10. MAGLAX [Concomitant]
     Dosage: UNK
  11. SENNOSIDE [Concomitant]
     Dosage: UNK
  12. TRIAZOLAM [Concomitant]
     Dosage: UNK

REACTIONS (2)
  - Altered state of consciousness [Recovered/Resolved]
  - Injury [Unknown]
